FAERS Safety Report 11871312 (Version 1)
Quarter: 2015Q4

REPORT INFORMATION
  Report Type: Spontaneous
  Country: US (occurrence: US)
  Receive Date: 20151228
  Receipt Date: 20151228
  Transmission Date: 20160305
  Serious: No
  Sender: FDA-Public Use
  Company Number: US-ELI_LILLY_AND_COMPANY-US201512007747

PATIENT
  Age: 37 Year
  Sex: Female
  Weight: 81.63 kg

DRUGS (10)
  1. BENTAL [Concomitant]
  2. TRAZODONE [Concomitant]
     Active Substance: TRAZODONE HYDROCHLORIDE
  3. NALTREXONE HCL [Concomitant]
     Active Substance: NALTREXONE HYDROCHLORIDE
     Indication: WEIGHT DECREASED
     Dosage: UNK, QD
     Route: 048
     Dates: start: 201511
  4. NALTREXONE HCL [Concomitant]
     Active Substance: NALTREXONE HYDROCHLORIDE
     Dosage: UNK, BID
     Route: 048
  5. SEROQUEL [Concomitant]
     Active Substance: QUETIAPINE FUMARATE
  6. NALTREXONE HCL [Concomitant]
     Active Substance: NALTREXONE HYDROCHLORIDE
     Dosage: UNK, BID
     Route: 048
  7. VALIUM [Concomitant]
     Active Substance: DIAZEPAM
  8. NALTREXONE HCL [Concomitant]
     Active Substance: NALTREXONE HYDROCHLORIDE
     Dosage: UNK, BID
     Route: 048
  9. PROZAC [Suspect]
     Active Substance: FLUOXETINE HYDROCHLORIDE
     Indication: DEPRESSION
     Dosage: 20 MG, QD
     Route: 065
     Dates: start: 20151117, end: 20151203
  10. TOPAMAX [Concomitant]
     Active Substance: TOPIRAMATE

REACTIONS (6)
  - Clumsiness [Not Recovered/Not Resolved]
  - Slow speech [Not Recovered/Not Resolved]
  - Memory impairment [Not Recovered/Not Resolved]
  - Dysarthria [Not Recovered/Not Resolved]
  - Confusional state [Not Recovered/Not Resolved]
  - Amnesia [Not Recovered/Not Resolved]

NARRATIVE: CASE EVENT DATE: 201512
